FAERS Safety Report 15602500 (Version 12)
Quarter: 2019Q3

REPORT INFORMATION
  Report Type: Report from Study
  Country: US (occurrence: US)
  Receive Date: 20181109
  Receipt Date: 20190823
  Transmission Date: 20191004
  Serious: Yes (Other)
  Sender: FDA-Public Use
  Company Number: US-TESARO, INC-US-2018TSO04165

PATIENT
  Sex: Female

DRUGS (13)
  1. PROCHLORPERAZINE. [Concomitant]
     Active Substance: PROCHLORPERAZINE
     Indication: PRODUCT USED FOR UNKNOWN INDICATION
     Dosage: UNK
  2. ZEJULA [Suspect]
     Active Substance: NIRAPARIB
     Dosage: 200 MG, QAM WITHOUT FOOD
     Route: 048
     Dates: start: 20180905
  3. VITAMIN B COMPLEX [Concomitant]
     Active Substance: CYANOCOBALAMIN\DEXPANTHENOL\NIACINAMIDE\PYRIDOXINE HYDROCHLORIDE\RIBOFLAVIN 5^-PHOSPHATE SODIUM\THIAMINE HYDROCHLORIDE\VITAMIN B COMPLEX
     Indication: PRODUCT USED FOR UNKNOWN INDICATION
  4. ZEJULA [Suspect]
     Active Substance: NIRAPARIB
     Dosage: 200 MG, QAM WITHOUT FOOD
     Route: 048
     Dates: start: 20180905
  5. STOOL SOFTENER (DOCUSATE) [Concomitant]
     Active Substance: DOCUSATE
     Indication: PRODUCT USED FOR UNKNOWN INDICATION
  6. ZEJULA [Suspect]
     Active Substance: NIRAPARIB
     Indication: MALIGNANT PERITONEAL NEOPLASM
     Dosage: 300 MG, QD
     Route: 048
     Dates: start: 20180807, end: 20180821
  7. PSYLLIUM                           /00029101/ [Concomitant]
     Active Substance: HERBALS\PLANTAGO OVATA LEAF
     Indication: PRODUCT USED FOR UNKNOWN INDICATION
  8. ZEJULA [Suspect]
     Active Substance: NIRAPARIB
     Dosage: 200MG QAM WITH/ WITHOUT FOOD
     Route: 048
  9. SENOKOT [Concomitant]
     Active Substance: SENNOSIDES
     Indication: PRODUCT USED FOR UNKNOWN INDICATION
  10. FLUTICASONE. [Concomitant]
     Active Substance: FLUTICASONE
     Indication: PRODUCT USED FOR UNKNOWN INDICATION
  11. VITAMIN D                          /00107901/ [Concomitant]
     Active Substance: ERGOCALCIFEROL
     Indication: PRODUCT USED FOR UNKNOWN INDICATION
  12. MILK OF MAGNESIA [Concomitant]
     Active Substance: MAGNESIUM HYDROXIDE
     Indication: PRODUCT USED FOR UNKNOWN INDICATION
  13. ONDANSETRON [Concomitant]
     Active Substance: ONDANSETRON
     Indication: PRODUCT USED FOR UNKNOWN INDICATION
     Dosage: UNK

REACTIONS (27)
  - Insomnia [Not Recovered/Not Resolved]
  - Asthenia [Recovering/Resolving]
  - Nausea [Recovering/Resolving]
  - Product dose omission [Unknown]
  - Feeling abnormal [Recovered/Resolved]
  - Abdominal distension [Unknown]
  - Constipation [Recovering/Resolving]
  - Stomatitis [Unknown]
  - Anxiety [Not Recovered/Not Resolved]
  - Carbohydrate antigen 125 increased [Not Recovered/Not Resolved]
  - Red blood cell count decreased [Not Recovered/Not Resolved]
  - Cyst [Not Recovered/Not Resolved]
  - Platelet count decreased [Recovering/Resolving]
  - Fatigue [Recovering/Resolving]
  - Tachyphrenia [Unknown]
  - Gastrooesophageal reflux disease [Unknown]
  - Full blood count decreased [Not Recovered/Not Resolved]
  - Bowel movement irregularity [Unknown]
  - Dizziness [Unknown]
  - Arthritis [Unknown]
  - Musculoskeletal chest pain [Unknown]
  - Disease progression [Unknown]
  - Neuropathy peripheral [Unknown]
  - Hypoaesthesia [Not Recovered/Not Resolved]
  - Haemoglobin decreased [Not Recovered/Not Resolved]
  - Haematocrit decreased [Not Recovered/Not Resolved]
  - Palpitations [Unknown]

NARRATIVE: CASE EVENT DATE: 2018
